FAERS Safety Report 15386901 (Version 1)
Quarter: 2018Q3

REPORT INFORMATION
  Report Type: Report from Study
  Country: US (occurrence: US)
  Receive Date: 20180914
  Receipt Date: 20180914
  Transmission Date: 20181010
  Serious: Yes (Other)
  Sender: FDA-Public Use
  Company Number: US-EXELIXIS-CABO-18015853

PATIENT
  Sex: Male
  Weight: 86.17 kg

DRUGS (2)
  1. CABOMETYX [Suspect]
     Active Substance: CABOZANTINIB S-MALATE
     Indication: RENAL CELL CARCINOMA
     Dosage: 60 MG, QD
     Route: 048
     Dates: start: 20180309, end: 20180315
  2. CABOMETYX [Suspect]
     Active Substance: CABOZANTINIB S-MALATE
     Dosage: 40 MG, QD
     Route: 048
     Dates: start: 2018, end: 2018

REACTIONS (9)
  - Genital blister [Unknown]
  - Fatigue [Unknown]
  - Pruritus [Recovering/Resolving]
  - Pain in extremity [Unknown]
  - Hernia [Unknown]
  - Muscle spasms [Unknown]
  - Insomnia [Unknown]
  - Myalgia [Unknown]
  - Arthralgia [Unknown]

NARRATIVE: CASE EVENT DATE: 2018
